FAERS Safety Report 9325066 (Version 1)
Quarter: 2013Q2

REPORT INFORMATION
  Report Type: Report from Study
  Country: GB (occurrence: NL)
  Receive Date: 20130603
  Receipt Date: 20130603
  Transmission Date: 20140414
  Serious: Yes (Hospitalization)
  Sender: FDA-Public Use
  Company Number: NL-B.I. PHARMACEUTICALS,INC./RIDGEFIELD-2013-BI-15101GD

PATIENT
  Age: 63 Year
  Sex: Male

DRUGS (3)
  1. TIOTROPIUM [Suspect]
     Indication: CHRONIC OBSTRUCTIVE PULMONARY DISEASE
     Dosage: 18 MCG
     Route: 055
     Dates: start: 20100702, end: 20100721
  2. FLIXOTIDE [Concomitant]
  3. SALBUTAMOL [Concomitant]

REACTIONS (7)
  - Drug ineffective [Recovered/Resolved]
  - Chronic obstructive pulmonary disease [Recovered/Resolved]
  - Dyspnoea [Recovered/Resolved]
  - Bronchitis [Recovered/Resolved]
  - Streptococcal sepsis [Recovered/Resolved]
  - Lower respiratory tract infection [Recovered/Resolved]
  - Pseudomonas infection [Recovered/Resolved]
